FAERS Safety Report 4458321-2 (Version None)
Quarter: 2004Q3

REPORT INFORMATION
  Report Type: 
  Country: None (occurrence: None)
  Receive Date: 20040917
  Receipt Date: 20040209
  Transmission Date: 20050211
  Serious: Yes (Other)
  Sender: FDA-Public Use
  Company Number: US-JNJFOC-20040202411

PATIENT
  Age: 32 Year
  Sex: Male
  Weight: 68.4932 kg

DRUGS (2)
  1. TOPAMAX [Suspect]
     Indication: EPILEPSY
  2. DILANTIN [Concomitant]

REACTIONS (4)
  - ANOREXIA [None]
  - COMMUNICATION DISORDER [None]
  - PSYCHOMOTOR RETARDATION [None]
  - WEIGHT DECREASED [None]
